FAERS Safety Report 15201039 (Version 2)
Quarter: 2018Q3

REPORT INFORMATION
  Report Type: Spontaneous
  Country: US (occurrence: US)
  Receive Date: 20180726
  Receipt Date: 20180822
  Transmission Date: 20181010
  Serious: Yes (Death)
  Sender: FDA-Public Use
  Company Number: US-JNJFOC-20180724666

PATIENT
  Age: 33 Year
  Sex: Female

DRUGS (3)
  1. CITRAMON P [Suspect]
     Active Substance: ACETAMINOPHEN\ASPIRIN\CAFFEINE
     Indication: PRODUCT USED FOR UNKNOWN INDICATION
     Route: 048
  2. PARACETAMOL [Suspect]
     Active Substance: ACETAMINOPHEN
     Indication: VIRAL INFECTION
     Route: 048
  3. PARACETAMOL [Suspect]
     Active Substance: ACETAMINOPHEN
     Route: 048

REACTIONS (13)
  - Hepatic encephalopathy [Fatal]
  - Gastrointestinal haemorrhage [Fatal]
  - Toxicity to various agents [Fatal]
  - Pericardial haemorrhage [Fatal]
  - Off label use [Unknown]
  - Craniocerebral injury [Fatal]
  - Product use in unapproved indication [Unknown]
  - Fall [Fatal]
  - Drug administration error [Unknown]
  - Coma hepatic [Fatal]
  - Hepatitis fulminant [Fatal]
  - Multiple organ dysfunction syndrome [Fatal]
  - Haemothorax [Fatal]
